FAERS Safety Report 5091323-4 (Version None)
Quarter: 2006Q3

REPORT INFORMATION
  Report Type: 
  Country: None (occurrence: None)
  Receive Date: 20060824
  Receipt Date: 20060811
  Transmission Date: 20061208
  Serious: Yes (Death, Hospitalization, Other)
  Sender: FDA-Public Use
  Company Number: 2006037086

PATIENT
  Age: 26 Year
  Sex: Male
  Weight: 65 kg

DRUGS (7)
  1. SUTENT [Suspect]
     Indication: METASTATIC RENAL CELL CARCINOMA
     Dosage: SEE IMAGE
     Dates: start: 20060217, end: 20060308
  2. SUTENT [Suspect]
     Indication: METASTATIC RENAL CELL CARCINOMA
     Dosage: SEE IMAGE
     Dates: start: 20060217, end: 20060308
  3. OMEPRAZOLE [Concomitant]
  4. BROMOPRIDE [Concomitant]
  5. CODEINE [Concomitant]
  6. SPARTEINE [Concomitant]
  7. HOMATROPINE [Concomitant]

REACTIONS (8)
  - DISEASE PROGRESSION [None]
  - HAEMOGLOBIN DECREASED [None]
  - NEUTROPENIA [None]
  - PNEUMOMEDIASTINUM [None]
  - PURULENCE [None]
  - SCAR [None]
  - SUBCUTANEOUS EMPHYSEMA [None]
  - WOUND DEHISCENCE [None]
